FAERS Safety Report 10158938 (Version 1)
Quarter: 2014Q2

REPORT INFORMATION
  Report Type: Spontaneous
  Country: US (occurrence: US)
  Receive Date: 20140508
  Receipt Date: 20140508
  Transmission Date: 20141212
  Serious: No
  Sender: FDA-Public Use
  Company Number: US-BIOGENIDEC-2014BI039579

PATIENT
  Sex: Female

DRUGS (3)
  1. TECFIDERA [Suspect]
     Indication: MULTIPLE SCLEROSIS
     Dates: start: 20140410
  2. TECFIDERA [Suspect]
     Indication: MULTIPLE SCLEROSIS
  3. ORTHO- CYCLEN [Concomitant]

REACTIONS (2)
  - Fatigue [Unknown]
  - Flushing [Recovered/Resolved]
